FAERS Safety Report 7691393-0 (Version None)
Quarter: 2011Q3

REPORT INFORMATION
  Report Type: 
  Country: None (occurrence: None)
  Receive Date: 20110818
  Receipt Date: 20110808
  Transmission Date: 20111222
  Serious: Yes (Other)
  Sender: FDA-Public Use
  Company Number: PHHY2011US39777

PATIENT
  Sex: Male

DRUGS (11)
  1. THEOPHYLLINE [Concomitant]
     Indication: CHRONIC OBSTRUCTIVE PULMONARY DISEASE
     Dosage: 600 MG, DAILY
     Route: 048
  2. SPIRONOLACTONE [Suspect]
     Indication: HYPERTENSION
     Dosage: 25 MG, DAILY
     Route: 048
  3. SPIRONOLACTONE [Suspect]
     Indication: OEDEMA
  4. LASIX [Suspect]
     Indication: HYPERTENSION
     Dosage: 40 MG, TID
     Route: 048
  5. ATENOLOL [Concomitant]
     Indication: HYPERTENSION
     Dosage: 25 MG, DAILY
     Route: 048
  6. POTASSIUM CHLORIDE [Concomitant]
     Dosage: 40 MEQ, TID
     Route: 048
  7. GLEEVEC [Suspect]
     Indication: CHRONIC MYELOID LEUKAEMIA
     Dosage: 400 MG, DAILY
     Route: 048
     Dates: start: 20100831
  8. PREDNISONE [Concomitant]
     Indication: CHRONIC OBSTRUCTIVE PULMONARY DISEASE
     Dosage: 5 MG, DAILY
     Route: 048
  9. SINGULAIR [Concomitant]
     Dosage: 10 MG, DAILY
     Route: 048
  10. LASIX [Suspect]
     Indication: OEDEMA
  11. PROAIR (FLUTICASONE PROPIONATE) [Concomitant]
     Indication: CHRONIC OBSTRUCTIVE PULMONARY DISEASE

REACTIONS (7)
  - RENAL DISORDER [None]
  - EMPHYSEMA [None]
  - BLOOD POTASSIUM INCREASED [None]
  - DIARRHOEA [None]
  - BLOOD CREATININE INCREASED [None]
  - DYSPNOEA [None]
  - POLYURIA [None]
